FAERS Safety Report 23952215 (Version 1)
Quarter: 2024Q2

REPORT INFORMATION
  Report Type: Spontaneous
  Country: US (occurrence: US)
  Receive Date: 20240607
  Receipt Date: 20240607
  Transmission Date: 20240716
  Serious: No
  Sender: FDA-Public Use
  Company Number: US-SA-SAC20240603001102

PATIENT
  Age: 47 Year
  Sex: Female

DRUGS (37)
  1. DUPIXENT [Suspect]
     Active Substance: DUPILUMAB
     Indication: Dermatitis atopic
     Dosage: 300 MG, QOW
     Route: 058
     Dates: start: 20200911
  2. AIMOVIG [Concomitant]
     Active Substance: ERENUMAB-AOOE
  3. ALBUTEROL SULFATE [Concomitant]
     Active Substance: ALBUTEROL SULFATE
  4. AMITRIPTYLINE [Concomitant]
     Active Substance: AMITRIPTYLINE
  5. APAP;CODEINE [Concomitant]
  6. AZELAIC ACID [Concomitant]
     Active Substance: AZELAIC ACID
  7. BACLOFEN [Concomitant]
     Active Substance: BACLOFEN
  8. BICALUTAMIDE [Concomitant]
     Active Substance: BICALUTAMIDE
  9. FAMOTIDINE [Concomitant]
     Active Substance: FAMOTIDINE
  10. FINASTERIDE [Concomitant]
     Active Substance: FINASTERIDE
  11. FLUTICASONE [Concomitant]
     Active Substance: FLUTICASONE
  12. GABAPENTIN [Concomitant]
     Active Substance: GABAPENTIN
  13. HYOSCYAMINE [Concomitant]
     Active Substance: HYOSCYAMINE
  14. HYOSCYAMINE [Concomitant]
     Active Substance: HYOSCYAMINE
  15. MEMANTINE [Concomitant]
     Active Substance: MEMANTINE
  16. METHOTREXATE [Concomitant]
     Active Substance: METHOTREXATE
  17. MISOPROSTOL [Concomitant]
     Active Substance: MISOPROSTOL
  18. MYRBETRIQ [Concomitant]
     Active Substance: MIRABEGRON
  19. OMEPRAZOLE [Concomitant]
     Active Substance: DONEPEZIL HYDROCHLORIDE\OMEPRAZOLE\OMEPRAZOLE MAGNESIUM
  20. PREDNISONE [Concomitant]
     Active Substance: PREDNISONE
  21. PROMETHAZINE [Concomitant]
     Active Substance: PROMETHAZINE HYDROCHLORIDE
  22. QULIPTA [Concomitant]
     Active Substance: ATOGEPANT
  23. SOLIFENACIN [Concomitant]
     Active Substance: SOLIFENACIN
  24. SYNTHROID [Concomitant]
     Active Substance: LEVOTHYROXINE SODIUM
  25. TRETINOIN [Concomitant]
     Active Substance: TRETINOIN
  26. UBRELVY [Concomitant]
     Active Substance: UBROGEPANT
  27. VYEPTI [Concomitant]
     Active Substance: EPTINEZUMAB-JJMR
  28. XIFAXAN [Concomitant]
     Active Substance: RIFAXIMIN
  29. HYDROXYZINE HYDROCHLORIDE [Concomitant]
     Active Substance: HYDROXYZINE HYDROCHLORIDE
  30. CYANOCOBALAMIN [Concomitant]
     Active Substance: CYANOCOBALAMIN
  31. CLARISCAN [Concomitant]
     Active Substance: GADOTERATE MEGLUMINE
  32. KENALOG [Concomitant]
     Active Substance: TRIAMCINOLONE ACETONIDE
  33. METHYLPREDNISOLONE [Concomitant]
     Active Substance: METHYLPREDNISOLONE
  34. UBRELVY [Concomitant]
     Active Substance: UBROGEPANT
  35. SPIRONOLACTONE [Concomitant]
     Active Substance: SPIRONOLACTONE
  36. SPIRONOLACTONE [Concomitant]
     Active Substance: SPIRONOLACTONE
  37. TRIAMCINE [Concomitant]

REACTIONS (2)
  - Sleep disorder due to a general medical condition [Unknown]
  - Dermatitis atopic [Unknown]

NARRATIVE: CASE EVENT DATE: 20240101
